FAERS Safety Report 10470371 (Version 2)
Quarter: 2014Q4

REPORT INFORMATION
  Report Type: Spontaneous
  Country: US (occurrence: US)
  Receive Date: 20140923
  Receipt Date: 20141126
  Transmission Date: 20150528
  Serious: Yes (Other)
  Sender: FDA-Public Use
  Company Number: US-BAYER-2014-141570

PATIENT
  Age: 28 Year
  Sex: Female
  Weight: 101.59 kg

DRUGS (5)
  1. MIRENA [Suspect]
     Active Substance: LEVONORGESTREL
     Indication: DYSMENORRHOEA
  2. MISOPROSTOL. [Concomitant]
     Active Substance: MISOPROSTOL
  3. MIRENA [Suspect]
     Active Substance: LEVONORGESTREL
     Indication: CONTRACEPTION
     Dosage: 20 MCG/24HR, CONT
     Route: 015
     Dates: start: 20140728, end: 20140919
  4. MIRENA [Suspect]
     Active Substance: LEVONORGESTREL
     Indication: MENORRHAGIA
  5. MIRENA [Suspect]
     Active Substance: LEVONORGESTREL
     Indication: POLYCYSTIC OVARIES

REACTIONS (5)
  - Device dislocation [None]
  - Menorrhagia [None]
  - Pelvic pain [None]
  - Genital haemorrhage [Recovered/Resolved]
  - Pelvic discomfort [None]

NARRATIVE: CASE EVENT DATE: 2014
